FAERS Safety Report 8455263-2 (Version None)
Quarter: 2012Q2

REPORT INFORMATION
  Report Type: 
  Country: None (occurrence: None)
  Receive Date: 20120621
  Receipt Date: 20120614
  Transmission Date: 20120825
  Serious: Yes (Other)
  Sender: FDA-Public Use
  Company Number: US-UCBSA-059587

PATIENT
  Sex: Male

DRUGS (1)
  1. CIMZIA [Suspect]
     Indication: CROHN'S DISEASE
     Dosage: UNKNOWN DOSE
     Dates: start: 20120201, end: 20120101

REACTIONS (1)
  - TESTIS CANCER [None]
